FAERS Safety Report 9702750 (Version 3)
Quarter: 2014Q1

REPORT INFORMATION
  Report Type: Report from Study
  Country: FR (occurrence: FR)
  Receive Date: 20131121
  Receipt Date: 20140327
  Transmission Date: 20141002
  Serious: Yes (Hospitalization, Other)
  Sender: FDA-Public Use
  Company Number: FR-UCBSA-103434

PATIENT
  Age: 62 Year
  Sex: Male
  Weight: 90 kg

DRUGS (4)
  1. CIMZIA [Suspect]
     Indication: RHEUMATOID ARTHRITIS
     Route: 058
     Dates: start: 20130919, end: 20131018
  2. CIMZIA [Suspect]
     Indication: POLYARTHRITIS
     Route: 058
     Dates: start: 20130919, end: 20131018
  3. CORTANCYL [Suspect]
     Indication: RHEUMATOID ARTHRITIS
     Dosage: DAILY DOSE: 10 MG
     Route: 048
     Dates: start: 2011
  4. BIPROFENID [Concomitant]
     Indication: RHEUMATOID ARTHRITIS
     Route: 048
     Dates: start: 2011

REACTIONS (1)
  - Subcutaneous abscess [Recovered/Resolved]
